FAERS Safety Report 6002089-5 (Version None)
Quarter: 2008Q4

REPORT INFORMATION
  Report Type: 
  Country: None (occurrence: None)
  Receive Date: 20081215
  Receipt Date: 20071126
  Transmission Date: 20090506
  Serious: No
  Sender: FDA-Public Use
  Company Number: US-AMGEN-KDL253999

PATIENT
  Sex: Male

DRUGS (1)
  1. ENBREL [Suspect]
     Indication: ANKYLOSING SPONDYLITIS
     Route: 058
     Dates: start: 20070701

REACTIONS (9)
  - ABNORMAL SENSATION IN EYE [None]
  - ALCOHOLIC HANGOVER [None]
  - ANKYLOSING SPONDYLITIS [None]
  - BLOOD GLUCOSE ABNORMAL [None]
  - EYE PAIN [None]
  - INJECTION SITE HAEMATOMA [None]
  - POLLAKIURIA [None]
  - THIRST [None]
  - WEIGHT INCREASED [None]
